FAERS Safety Report 12245556 (Version 1)
Quarter: 2016Q2

REPORT INFORMATION
  Report Type: Spontaneous
  Country: US (occurrence: None)
  Receive Date: 20160406
  Receipt Date: 20160406
  Transmission Date: 20160815
  Serious: No
  Sender: FDA-Public Use
  Company Number: None

PATIENT
  Sex: Male

DRUGS (1)
  1. ADEFOVIR 10 MG SIGMA PHARM [Suspect]
     Active Substance: ADEFOVIR DIPIVOXIL
     Indication: HEPATITIS B
     Route: 048
     Dates: start: 20150804

REACTIONS (2)
  - Fatigue [None]
  - Terminal insomnia [None]

NARRATIVE: CASE EVENT DATE: 2016
